FAERS Safety Report 8259530-7 (Version None)
Quarter: 2012Q2

REPORT INFORMATION
  Report Type: 
  Country: None (occurrence: None)
  Receive Date: 20120404
  Receipt Date: 20120402
  Transmission Date: 20120825
  Serious: Yes (Life-Threatening, Hospitalization)
  Sender: FDA-Public Use
  Company Number: US-MERCK-1106USA02343

PATIENT
  Age: 31 Year
  Sex: Female

DRUGS (1)
  1. PRINIVIL [Suspect]
     Indication: HYPERTENSION
     Route: 048
     Dates: start: 20100601

REACTIONS (12)
  - NEPHROLITHIASIS [None]
  - RENAL HAEMORRHAGE [None]
  - AMNESIA [None]
  - DYSFUNCTIONAL UTERINE BLEEDING [None]
  - DRUG INEFFECTIVE [None]
  - UTERINE LEIOMYOMA [None]
  - BREAST CYST [None]
  - OVARIAN CYST RUPTURED [None]
  - HEADACHE [None]
  - CHEST PAIN [None]
  - URINARY TRACT INFECTION [None]
  - GLAUCOMA [None]
